FAERS Safety Report 6682540-8 (Version None)
Quarter: 2010Q2

REPORT INFORMATION
  Report Type: 
  Country: None (occurrence: None)
  Receive Date: 20100415
  Receipt Date: 20100409
  Transmission Date: 20101027
  Serious: Yes (Other)
  Sender: FDA-Public Use
  Company Number: AU-NAPPMUNDI-GBR-2010-0006256

PATIENT
  Age: 53 Year
  Sex: Male

DRUGS (8)
  1. MORPHINE SULFATE [Suspect]
     Indication: ANALGESIC THERAPY
     Dosage: 330 MG, DAILY
     Route: 058
  2. OXYCODONE HCL [Suspect]
     Indication: ANALGESIC THERAPY
  3. AMITRIPTYLINE HCL [Concomitant]
  4. THIETHYLPERAZINE [Concomitant]
     Indication: ANTIEMETIC SUPPORTIVE CARE
  5. METOCLOPRAMIDE HYDROCHLORIDE [Concomitant]
     Indication: ANTIEMETIC SUPPORTIVE CARE
  6. NAPROXEN [Concomitant]
     Indication: ANALGESIC INTERVENTION SUPPORTIVE THERAPY
  7. PREDNISOLONE [Concomitant]
     Indication: STEROID THERAPY
  8. TEMAZEPAM [Concomitant]

REACTIONS (1)
  - MYOCLONUS [None]
